FAERS Safety Report 24809826 (Version 1)
Quarter: 2025Q1

REPORT INFORMATION
  Report Type: Spontaneous
  Country: CA (occurrence: CA)
  Receive Date: 20250106
  Receipt Date: 20250106
  Transmission Date: 20250409
  Serious: Yes (Hospitalization)
  Sender: ACCORD
  Company Number: None

PATIENT
  Age: 62 Year
  Sex: Female
  Weight: 69 kg

DRUGS (19)
  1. FLUOROURACIL [Suspect]
     Active Substance: FLUOROURACIL
     Indication: Pancreatic carcinoma metastatic
  2. IRINOTECAN [Suspect]
     Active Substance: IRINOTECAN
     Indication: Pancreatic carcinoma metastatic
  3. OXALIPLATIN [Suspect]
     Active Substance: OXALIPLATIN
     Indication: Pancreatic carcinoma metastatic
  4. FOLIC ACID [Suspect]
     Active Substance: FOLIC ACID
     Indication: Pancreatic carcinoma metastatic
  5. ATROPINE [Concomitant]
     Active Substance: ATROPINE
  6. CYCLOSPORINE [Concomitant]
     Active Substance: CYCLOSPORINE
  7. DEXAMETHASONE [Concomitant]
     Active Substance: DEXAMETHASONE
  8. DIMENHYDRINATE [Concomitant]
     Active Substance: DIMENHYDRINATE
  9. EMEND [Concomitant]
     Active Substance: APREPITANT
  10. LOPERAMIDE [Concomitant]
     Active Substance: LOPERAMIDE
  11. LORAZEPAM [Concomitant]
     Active Substance: LORAZEPAM
  12. METOCLOPRAMIDE [Concomitant]
     Active Substance: METOCLOPRAMIDE
  13. MORPHINE [Concomitant]
     Active Substance: MORPHINE
  14. OLANZAPINE [Concomitant]
     Active Substance: OLANZAPINE
  15. ONDANSETRON [Concomitant]
     Active Substance: ONDANSETRON
  16. PANTOPRAZOLE [Concomitant]
     Active Substance: PANTOPRAZOLE
  17. POLYETHYLENE GLYCOL [Concomitant]
     Active Substance: POLYETHYLENE GLYCOL
  18. PREGABALIN [Concomitant]
     Active Substance: PREGABALIN
  19. VITAMIN D [Concomitant]
     Active Substance: VITAMIN D NOS

REACTIONS (2)
  - Febrile neutropenia [Recovered/Resolved]
  - Urinary tract disorder [Recovered/Resolved]
